FAERS Safety Report 25602766 (Version 1)
Quarter: 2025Q3

REPORT INFORMATION
  Report Type: Spontaneous
  Country: US (occurrence: US)
  Receive Date: 20250724
  Receipt Date: 20250724
  Transmission Date: 20251021
  Serious: No
  Sender: IPSEN BIOPHARMACEUTICALS, INC.
  Company Number: US-IPSEN Group, Research and Development-2025-16614

PATIENT
  Age: 69 Year
  Sex: Female

DRUGS (1)
  1. SOMATULINE DEPOT [Suspect]
     Active Substance: LANREOTIDE ACETATE
     Indication: Neuroendocrine tumour
     Dosage: BATCH NUMBER 014499, EXPIRY DATE: 31-DEC-2027
     Dates: start: 202404

REACTIONS (4)
  - Joint swelling [Recovered/Resolved]
  - Pruritus [Recovered/Resolved]
  - Injection site mass [Unknown]
  - Rash pruritic [Unknown]
